FAERS Safety Report 20562589 (Version 1)
Quarter: 2022Q1

REPORT INFORMATION
  Report Type: Spontaneous
  Country: FR (occurrence: FR)
  Receive Date: 20220307
  Receipt Date: 20220307
  Transmission Date: 20220423
  Serious: Yes (Death, Other)
  Sender: FDA-Public Use
  Company Number: FR-PFIZER INC-202200367118

PATIENT
  Sex: Male

DRUGS (5)
  1. VYNDAQEL [Suspect]
     Active Substance: TAFAMIDIS MEGLUMINE
     Indication: Cardiac amyloidosis
     Dosage: 20 MG, DAILY
  2. FUROSEMIDE [Concomitant]
     Active Substance: FUROSEMIDE
     Dosage: 40 UNK, 2X/DAY
  3. CANDESARTAN [Concomitant]
     Active Substance: CANDESARTAN
     Dosage: 4 UNK
  4. FEBUXOSTAT [Concomitant]
     Active Substance: FEBUXOSTAT
     Dosage: 80 UNK
  5. FLUINDIONE [Concomitant]
     Active Substance: FLUINDIONE

REACTIONS (2)
  - Death [Fatal]
  - Cardiac failure chronic [Unknown]

NARRATIVE: CASE EVENT DATE: 20210801
